FAERS Safety Report 8421595-7 (Version None)
Quarter: 2012Q2

REPORT INFORMATION
  Report Type: 
  Country: None (occurrence: None)
  Receive Date: 20120605
  Receipt Date: 20120605
  Transmission Date: 20120825
  Serious: No
  Sender: FDA-Public Use
  Company Number: None

PATIENT
  Age: 82 Year
  Sex: Female
  Weight: 60.782 kg

DRUGS (1)
  1. CIPROFLOXACIN [Suspect]
     Dosage: 250 MG ONLY DAILY FOR 3 DAY
     Dates: start: 20120517

REACTIONS (1)
  - LIP SWELLING [None]
